FAERS Safety Report 8143942-6 (Version None)
Quarter: 2012Q1

REPORT INFORMATION
  Report Type: 
  Country: None (occurrence: None)
  Receive Date: 20120217
  Receipt Date: 20120209
  Transmission Date: 20120608
  Serious: Yes (Hospitalization, Other)
  Sender: FDA-Public Use
  Company Number: US-SANOFI-AVENTIS-2012SA008897

PATIENT
  Age: 57 Year
  Sex: Female

DRUGS (1)
  1. LANTUS [Suspect]
     Dosage: 50 UNITS IN THE AM AND 40 UNITS AT NIGHT
     Route: 058

REACTIONS (2)
  - DIABETIC HYPERGLYCAEMIC COMA [None]
  - SLOW SPEECH [None]
